FAERS Safety Report 15368969 (Version 4)
Quarter: 2019Q2

REPORT INFORMATION
  Report Type: Report from Study
  Country: DE (occurrence: DE)
  Receive Date: 20180911
  Receipt Date: 20190603
  Transmission Date: 20190711
  Serious: No
  Sender: FDA-Public Use
  Company Number: DE-ROCHE-2182332

PATIENT
  Sex: Female
  Weight: 63 kg

DRUGS (10)
  1. DEKRISTOL [Concomitant]
     Active Substance: CHOLECALCIFEROL
     Route: 048
     Dates: start: 20180607
  2. RANITIDINE. [Concomitant]
     Active Substance: RANITIDINE
     Indication: PROPHYLAXIS
     Route: 048
     Dates: start: 20180613, end: 20180615
  3. AERIUS (DESLORATADINE) [Concomitant]
     Active Substance: DESLORATADINE
     Indication: PROPHYLAXIS
     Route: 048
     Dates: start: 20180613, end: 20180615
  4. SPASMEX [TROSPIUM CHLORIDE] [Concomitant]
     Dosage: INDICATION:BLADDER PROBLEMS
     Route: 048
     Dates: start: 20161212
  5. NITROXOLIN [Concomitant]
     Indication: URINARY TRACT INFECTION
     Route: 048
     Dates: start: 20161212
  6. OCRELIZUMAB. [Suspect]
     Active Substance: OCRELIZUMAB
     Indication: MULTIPLE SCLEROSIS
     Route: 042
     Dates: start: 20180614, end: 20180628
  7. BACLOFEN. [Concomitant]
     Active Substance: BACLOFEN
     Indication: MUSCLE SPASTICITY
     Dosage: EXACT DOSE AND INTERVAL UNK
     Route: 048
  8. FAMPYRA [Concomitant]
     Active Substance: DALFAMPRIDINE
     Dosage: INDICATION:IMPROVEMENT OF WALKING DISTANCE
     Route: 048
     Dates: start: 20120202
  9. AERIUS (DESLORATADINE) [Concomitant]
     Active Substance: DESLORATADINE
     Route: 048
     Dates: start: 20180627, end: 20181215
  10. PREDNISOLUT [PREDNISOLONE HEMISUCCINATE] [Concomitant]
     Indication: PROPHYLAXIS
     Route: 042
     Dates: start: 20180614, end: 20180614

REACTIONS (1)
  - Urinary tract infection [Recovered/Resolved]
